FAERS Safety Report 4279508-8 (Version None)
Quarter: 2004Q1

REPORT INFORMATION
  Report Type: 
  Country: None (occurrence: None)
  Receive Date: 20040123
  Receipt Date: 20030121
  Transmission Date: 20041129
  Serious: Yes (Other)
  Sender: FDA-Public Use
  Company Number: 200308851

PATIENT
  Age: 64 Year
  Sex: Female

DRUGS (6)
  1. STREPTASE [Suspect]
     Indication: MYOCARDIAL INFARCTION
     Dosage: 1.5 MIU DAILY IV
     Route: 042
     Dates: start: 20031009, end: 20031009
  2. ASPIRIN [Suspect]
     Indication: MYOCARDIAL INFARCTION
     Dosage: 150 MG DAILY PO
     Route: 048
     Dates: start: 20031009
  3. ENOXAPARIN OR PLACEBO VS. HEPARIN OR PLACEBO [Suspect]
     Indication: MYOCARDIAL INFARCTION
     Dosage: IV
     Route: 042
     Dates: start: 20031009, end: 20031009
  4. ATENOLOL [Concomitant]
  5. METFORMIN HCL [Concomitant]
  6. GLIPIZIDE [Concomitant]

REACTIONS (10)
  - CHILLS [None]
  - GLOSSODYNIA [None]
  - HAEMATOCRIT DECREASED [None]
  - HAEMOGLOBIN DECREASED [None]
  - MYOCARDIAL INFARCTION [None]
  - PHARYNGOLARYNGEAL PAIN [None]
  - PRURITUS [None]
  - SWELLING FACE [None]
  - TYPE I HYPERSENSITIVITY [None]
  - URTICARIA PAPULAR [None]
